FAERS Safety Report 6055528-8 (Version None)
Quarter: 2009Q1

REPORT INFORMATION
  Report Type: 
  Country: None (occurrence: None)
  Receive Date: 20090128
  Receipt Date: 20090122
  Transmission Date: 20090719
  Serious: Yes (Other)
  Sender: FDA-Public Use
  Company Number: B0537301A

PATIENT
  Age: 75 Year
  Sex: Female
  Weight: 53 kg

DRUGS (6)
  1. LAPATINIB [Suspect]
     Indication: BREAST CANCER
     Dosage: 1500MG PER DAY
     Route: 048
     Dates: start: 20080507
  2. PANCREOLAN FORTE [Concomitant]
     Indication: PROPHYLAXIS
     Dosage: 1TAB THREE TIMES PER DAY
     Route: 048
     Dates: start: 19850101
  3. ESSENCIALE-FORTE [Concomitant]
     Indication: PROPHYLAXIS
     Dosage: 1TAB THREE TIMES PER DAY
     Route: 048
     Dates: start: 19850101
  4. STILNOX [Concomitant]
     Indication: INSOMNIA
     Dosage: 20MG PER DAY
     Route: 048
     Dates: start: 20080512
  5. LOPERAN [Concomitant]
     Dosage: 2MG PER DAY
     Route: 048
     Dates: start: 20080523
  6. SILIMARIN [Concomitant]
     Indication: PROPHYLAXIS
     Route: 048

REACTIONS (1)
  - ALANINE AMINOTRANSFERASE INCREASED [None]
